FAERS Safety Report 7365678-1 (Version None)
Quarter: 2011Q1

REPORT INFORMATION
  Report Type: 
  Country: None (occurrence: None)
  Receive Date: 20110316
  Receipt Date: 20110316
  Transmission Date: 20110831
  Serious: Yes (Other)
  Sender: FDA-Public Use
  Company Number: None

PATIENT
  Sex: Male
  Weight: 33 kg

DRUGS (2)
  1. METHYLPHENIDATE HCL [Suspect]
     Indication: ATTENTION DEFICIT/HYPERACTIVITY DISORDER
     Dosage: 5MG 2XD 047
     Route: 048
     Dates: start: 20110217
  2. LACTASE ENZYME SUPPLEMENT MCNEIL NUTRITIONALS LLC 2004 [Suspect]
     Indication: LACTOSE INTOLERANCE
     Dosage: 1 CHEW TABLET PRN 047
     Route: 048
     Dates: start: 20110301

REACTIONS (6)
  - APHASIA [None]
  - ABDOMINAL PAIN UPPER [None]
  - MUSCLE SPASMS [None]
  - LACRIMATION INCREASED [None]
  - SALIVARY HYPERSECRETION [None]
  - NAUSEA [None]
